FAERS Safety Report 25953229 (Version 2)
Quarter: 2025Q4

REPORT INFORMATION
  Report Type: Spontaneous
  Country: BR (occurrence: BR)
  Receive Date: 20251023
  Receipt Date: 20251119
  Transmission Date: 20260118
  Serious: Yes (Hospitalization, Other)
  Sender: VERITY PHARMACEUTICALS INC.
  Company Number: BR-VER-202500008

PATIENT
  Age: 10 Year
  Sex: Female

DRUGS (2)
  1. TRIPTORELIN PAMOATE [Suspect]
     Active Substance: TRIPTORELIN PAMOATE
     Indication: Hormone level abnormal
     Route: 065
     Dates: start: 202310
  2. TRIPTORELIN PAMOATE [Suspect]
     Active Substance: TRIPTORELIN PAMOATE
     Indication: Product use in unapproved indication
     Route: 065
     Dates: start: 202310

REACTIONS (5)
  - Brain abscess [Unknown]
  - Product administered to patient of inappropriate age [Unknown]
  - Seizure [Unknown]
  - Product use in unapproved indication [Unknown]
  - Sinusitis [Unknown]

NARRATIVE: CASE EVENT DATE: 20231001
